FAERS Safety Report 17962779 (Version 1)
Quarter: 2020Q2

REPORT INFORMATION
  Report Type: Report from Study
  Country: None (occurrence: US)
  Receive Date: 20200630
  Receipt Date: 20200630
  Transmission Date: 20200714
  Serious: No
  Sender: FDA-Public Use
  Company Number: US-BIOVITRUM-2019US4052

PATIENT
  Sex: Female

DRUGS (3)
  1. KINERET [Suspect]
     Active Substance: ANAKINRA
     Indication: PYREXIA
  2. KINERET [Suspect]
     Active Substance: ANAKINRA
     Indication: CHRONIC INFANTILE NEUROLOGICAL CUTANEOUS AND ARTICULAR SYNDROME
  3. KINERET [Suspect]
     Active Substance: ANAKINRA
     Indication: JUVENILE IDIOPATHIC ARTHRITIS
     Route: 058

REACTIONS (13)
  - Depression [Unknown]
  - Oral herpes [Unknown]
  - Restlessness [Unknown]
  - Blood pressure increased [Unknown]
  - Anxiety [Unknown]
  - Stress [Not Recovered/Not Resolved]
  - Uterine leiomyoma [Unknown]
  - Arthralgia [Unknown]
  - Rash [Unknown]
  - Feeling abnormal [Unknown]
  - Influenza [Not Recovered/Not Resolved]
  - Constipation [Unknown]
  - Off label use [Unknown]
